FAERS Safety Report 9538893 (Version 1)
Quarter: 2013Q2

REPORT INFORMATION
  Report Type: Spontaneous
  Country: US (occurrence: None)
  Receive Date: 20130517
  Receipt Date: 20130517
  Transmission Date: 20140414
  Serious: Yes (Other)
  Sender: FDA-Public Use
  Company Number: 1000043588

PATIENT
  Age: 59 Year
  Sex: Female

DRUGS (2)
  1. VIIBRYD [Suspect]
     Indication: DEPRESSION
     Dosage: 10 MG (10 MG, 1 IN 1 D), ORAL
     Route: 048
     Dates: start: 201210, end: 2012
  2. ADDERALL (OBETROL) (OBETROL) [Concomitant]

REACTIONS (3)
  - Hypoaesthesia [None]
  - Arthralgia [None]
  - Feeling cold [None]
